FAERS Safety Report 25343957 (Version 4)
Quarter: 2025Q2

REPORT INFORMATION
  Report Type: Spontaneous
  Country: US (occurrence: US)
  Receive Date: 20250521
  Receipt Date: 20250626
  Transmission Date: 20250716
  Serious: No
  Sender: SANOFI AVENTIS
  Company Number: US-SANOFI-02525035

PATIENT
  Age: 80 Year
  Sex: Female

DRUGS (1)
  1. TOUJEO MAX [Suspect]
     Active Substance: INSULIN GLARGINE
     Indication: Diabetes mellitus
     Dosage: 50 U, QD (3 INJECTIONS OF 20,20,10 UNITS)
     Route: 065

REACTIONS (3)
  - Hyperglycaemia [Unknown]
  - Device mechanical issue [Unknown]
  - Off label use [Unknown]
